FAERS Safety Report 14056163 (Version 3)
Quarter: 2018Q2

REPORT INFORMATION
  Report Type: Spontaneous
  Country: GB (occurrence: GB)
  Receive Date: 20171006
  Receipt Date: 20180507
  Transmission Date: 20180711
  Serious: Yes (Life-Threatening, Congenital Anomaly, Other)
  Sender: FDA-Public Use
  Company Number: GB-ABBVIE-17P-167-2122657-00

PATIENT
  Sex: Female

DRUGS (1)
  1. VALPROATE SODIUM. [Suspect]
     Active Substance: VALPROATE SODIUM
     Indication: MATERNAL EXPOSURE TIMING UNSPECIFIED
     Route: 064

REACTIONS (11)
  - Migraine [Unknown]
  - Terminal state [Unknown]
  - Congenital anomaly [Unknown]
  - Learning disorder [Unknown]
  - Ill-defined disorder [Unknown]
  - Autism spectrum disorder [Unknown]
  - Cerebral disorder [Unknown]
  - Foetal anticonvulsant syndrome [Unknown]
  - Pain [Unknown]
  - Foetal exposure during pregnancy [Unknown]
  - Dysmorphism [Unknown]
